FAERS Safety Report 16874711 (Version 1)
Quarter: 2019Q4

REPORT INFORMATION
  Report Type: Spontaneous
  Country: FI (occurrence: FI)
  Receive Date: 20191001
  Receipt Date: 20191001
  Transmission Date: 20200122
  Serious: Yes (Death, Other)
  Sender: FDA-Public Use
  Company Number: FI-PFM-2019-11734

PATIENT

DRUGS (3)
  1. ESTRAMUSTINE [Suspect]
     Active Substance: ESTRAMUSTINE
     Indication: PRODUCT USED FOR UNKNOWN INDICATION
     Dosage: UNKNOWN FREQ.
     Route: 065
     Dates: start: 201511, end: 201605
  2. VINORELBINE [Suspect]
     Active Substance: VINORELBINE TARTRATE
     Indication: PRODUCT USED FOR UNKNOWN INDICATION
     Dosage: CYCLIC (6 CYCLES)
     Route: 065
     Dates: start: 201508, end: 201510
  3. ENZALUTAMIDE [Suspect]
     Active Substance: ENZALUTAMIDE
     Indication: PROSTATE CANCER METASTATIC
     Dosage: UNKNOWN FREQ.
     Route: 065
     Dates: start: 201404, end: 201507

REACTIONS (4)
  - Death [Fatal]
  - Complication associated with device [Unknown]
  - Anaemia [Unknown]
  - Prostatic specific antigen increased [Unknown]

NARRATIVE: CASE EVENT DATE: 201501
